FAERS Safety Report 9826381 (Version 1)
Quarter: 2014Q1

REPORT INFORMATION
  Report Type: Spontaneous
  Country: US (occurrence: US)
  Receive Date: 20140117
  Receipt Date: 20140117
  Transmission Date: 20141002
  Serious: No
  Sender: FDA-Public Use
  Company Number: US-BIOGENIDEC-2014BI001324

PATIENT
  Sex: Female
  Weight: 57 kg

DRUGS (34)
  1. TECFIDERA [Suspect]
     Indication: MULTIPLE SCLEROSIS
     Dates: start: 201307, end: 201312
  2. ADDERALL [Concomitant]
     Route: 048
  3. AMBIEN [Concomitant]
  4. ASTELIN [Concomitant]
  5. CLARITIN-D [Concomitant]
  6. EFFEXOR XR [Concomitant]
     Route: 048
  7. ELMIRON [Concomitant]
     Route: 048
  8. FEXMID [Concomitant]
  9. FISH OIL [Concomitant]
  10. FLEXERIL [Concomitant]
  11. IMITREX [Concomitant]
  12. LAMICTAL [Concomitant]
  13. LIDODERM [Concomitant]
  14. MAGNESIUM CITRATE [Concomitant]
  15. MARINOL [Concomitant]
  16. NASACORT AQ [Concomitant]
  17. NASONEX [Concomitant]
  18. NEURONTIN [Concomitant]
     Route: 048
  19. OXYCONDONE [Concomitant]
  20. OXYCONTIN [Concomitant]
     Route: 048
  21. PLETAL [Concomitant]
     Route: 048
  22. PRILOSEC [Concomitant]
  23. PROTOPIC [Concomitant]
  24. ROZEREM [Concomitant]
     Route: 048
  25. SYNTHROID [Concomitant]
     Route: 048
  26. TOPAMAX [Concomitant]
     Route: 048
  27. TRAZODONE [Concomitant]
     Route: 048
  28. TRIAMCINOLONE ACETONIDE [Concomitant]
  29. VITAMIN B COMPLEX [Concomitant]
  30. VITAMIN B 12 [Concomitant]
  31. VITAMIN D 3 [Concomitant]
  32. VITAMIN K [Concomitant]
  33. VOLTAREN [Concomitant]
  34. XANAX [Concomitant]

REACTIONS (6)
  - Pain [Unknown]
  - Drug dose omission [Unknown]
  - Memory impairment [Unknown]
  - Complex regional pain syndrome [Unknown]
  - Sciatica [Unknown]
  - Drug ineffective [Unknown]
